FAERS Safety Report 16485378 (Version 3)
Quarter: 2019Q3

REPORT INFORMATION
  Report Type: Spontaneous
  Country: FR (occurrence: FR)
  Receive Date: 20190627
  Receipt Date: 20190723
  Transmission Date: 20191004
  Serious: Yes (Death, Other)
  Sender: FDA-Public Use
  Company Number: FR-MYLANLABS-2019M1059603

PATIENT
  Age: 64 Year
  Sex: Male
  Weight: 101 kg

DRUGS (13)
  1. RAMIPRIL. [Suspect]
     Active Substance: RAMIPRIL
     Indication: HYPERTENSION
     Dosage: 5 MILLIGRAM, CYCLE (5 MG, DRUG INTERVAL: 1DAY)
     Route: 048
     Dates: start: 20161201, end: 20181128
  2. ELIQUIS [Suspect]
     Active Substance: APIXABAN
     Indication: ATRIAL FIBRILLATION
     Dosage: 5 MILLIGRAM, CYCLE (5 MG, DRUG INTERVAL: 1 DAY)
     Route: 048
     Dates: start: 20181106, end: 20181128
  3. ESIDREX [Suspect]
     Active Substance: HYDROCHLOROTHIAZIDE
     Indication: HYPERTENSION
     Dosage: 25 MILLIGRAM, CYCLE (25 MG, DRUG INTERVAL: 1 DAY)
     Route: 048
     Dates: start: 20170601, end: 20181128
  4. RAMIPRIL. [Suspect]
     Active Substance: RAMIPRIL
     Dosage: 5 MILLIGRAM, CYCLE (5 MG, DRUG INTERVAL: 1DAY)
     Route: 048
     Dates: start: 20161201
  5. ZOPICLONE [Concomitant]
     Active Substance: ZOPICLONE
     Indication: PRODUCT USED FOR UNKNOWN INDICATION
     Dosage: 7.5 MILLIGRAM (7.5 MG, UNK (0-0-0-0.5)
     Route: 065
  6. PANTOPRAZOLE [Suspect]
     Active Substance: PANTOPRAZOLE
     Indication: DYSPEPSIA
     Dosage: 20 MILLIGRAM, CYCLE (20 MG, DRUG INTERVAL:1 DAY)
     Route: 048
     Dates: start: 2015, end: 20181128
  7. ATORVASTATIN PFIZER [Suspect]
     Active Substance: ATORVASTATIN
     Indication: CEREBROVASCULAR ACCIDENT
     Dosage: 40 MILLIGRAM, CYCLE (40 MG, DRUG INTERVAL: 1 DAY)
     Route: 048
     Dates: start: 20181106, end: 20181128
  8. ESIDREX [Suspect]
     Active Substance: HYDROCHLOROTHIAZIDE
     Dosage: 25 MILLIGRAM, CYCLE (25 MG, DRUG INTERVAL: 1 DAY)
     Route: 048
     Dates: start: 20170601
  9. ATORVASTATIN PFIZER [Suspect]
     Active Substance: ATORVASTATIN
     Dosage: 40 MILLIGRAM, CYCLE (40 MG, DRUG INTERVAL: 1 DAY)
     Route: 048
     Dates: start: 20181106
  10. ELIQUIS [Suspect]
     Active Substance: APIXABAN
     Indication: CEREBROVASCULAR ACCIDENT PROPHYLAXIS
     Dosage: 5 MILLIGRAM, CYCLE(5 MG, DRUG INTERVAL: 1 DAY)
     Route: 048
     Dates: start: 20181106
  11. AMLODIPINE [Suspect]
     Active Substance: AMLODIPINE BESYLATE
     Indication: CEREBROVASCULAR ACCIDENT
     Dosage: 10 MILLIGRAM, CYCLE (10 MG, DRUG INTERVAL: 1 DAY)
     Route: 048
     Dates: start: 20181029, end: 20181128
  12. PANTOPRAZOLE [Suspect]
     Active Substance: PANTOPRAZOLE
     Dosage: 20 MILLIGRAM, CYCLE (20 MG, DRUG INTERVAL:1 DAY)
     Route: 048
     Dates: start: 2015
  13. AMLODIPINE [Suspect]
     Active Substance: AMLODIPINE BESYLATE
     Dosage: 10 MILLIGRAM, CYCLE(10 MG, DRUG INTERVAL: 1 DAY)
     Route: 048
     Dates: start: 20181029

REACTIONS (2)
  - Pancreatitis acute [Fatal]
  - Abdominal pain [Fatal]

NARRATIVE: CASE EVENT DATE: 20181127
